FAERS Safety Report 23319044 (Version 1)
Quarter: 2023Q4

REPORT INFORMATION
  Report Type: Spontaneous
  Country: GB (occurrence: GB)
  Receive Date: 20231220
  Receipt Date: 20231220
  Transmission Date: 20240109
  Serious: Yes (Death, Other)
  Sender: FDA-Public Use
  Company Number: None

PATIENT

DRUGS (4)
  1. LAMOTRIGINE [Suspect]
     Active Substance: LAMOTRIGINE
     Indication: Product used for unknown indication
     Dosage: UNK,UNK
  2. ZOPICLONE [Suspect]
     Active Substance: ZOPICLONE
     Indication: Product used for unknown indication
     Dosage: UNK,UNK
  3. SERTRALINE [Suspect]
     Active Substance: SERTRALINE HYDROCHLORIDE
     Indication: Product used for unknown indication
     Dosage: UNK,UNK
  4. CLOZAPINE [Suspect]
     Active Substance: CLOZAPINE
     Indication: Schizophrenia
     Dosage: UNK
     Route: 050
     Dates: start: 20170914, end: 20220519

REACTIONS (6)
  - Brain oedema [Fatal]
  - Arrhythmia [Fatal]
  - Toxicity to various agents [Fatal]
  - Postmortem blood drug level abnormal [Not Recovered/Not Resolved]
  - Oedema [Not Recovered/Not Resolved]
  - Myocardial fibrosis [Not Recovered/Not Resolved]
